FAERS Safety Report 11135577 (Version 1)
Quarter: 2015Q2

REPORT INFORMATION
  Report Type: Spontaneous
  Country: US (occurrence: None)
  Receive Date: 20150522
  Receipt Date: 20150522
  Transmission Date: 20150821
  Serious: No
  Sender: FDA-Public Use
  Company Number: None

PATIENT
  Sex: Female

DRUGS (2)
  1. SOVALDI [Suspect]
     Active Substance: SOFOSBUVIR
     Route: 048
  2. OLYSIO [Suspect]
     Active Substance: SIMEPREVIR
     Route: 048

REACTIONS (10)
  - Diarrhoea [None]
  - Irritability [None]
  - Dysgeusia [None]
  - Condition aggravated [None]
  - Dry skin [None]
  - Fatigue [None]
  - Headache [None]
  - Memory impairment [None]
  - Depression [None]
  - Photosensitivity reaction [None]
